FAERS Safety Report 19373295 (Version 1)
Quarter: 2021Q2

REPORT INFORMATION
  Report Type: Spontaneous
  Country: US (occurrence: US)
  Receive Date: 20210604
  Receipt Date: 20210604
  Transmission Date: 20210717
  Serious: Yes (Other)
  Sender: FDA-Public Use
  Company Number: US-GLAXOSMITHKLINE-US2021GSK118960

PATIENT
  Sex: Male

DRUGS (6)
  1. RANITIDINE. [Suspect]
     Active Substance: RANITIDINE
     Indication: DYSPEPSIA
     Dosage: UNK, QD
     Route: 065
     Dates: start: 201301, end: 202001
  2. RANITIDINE. [Suspect]
     Active Substance: RANITIDINE
     Indication: COLONOSCOPY
  3. RANITIDINE. [Suspect]
     Active Substance: RANITIDINE
     Indication: COLONOSCOPY
  4. RANITIDINE. [Suspect]
     Active Substance: RANITIDINE
     Indication: DYSPEPSIA
     Dosage: UNK, QD
     Route: 065
     Dates: start: 201301, end: 202001
  5. RANITIDINE. [Suspect]
     Active Substance: RANITIDINE
     Indication: HERNIA
  6. RANITIDINE. [Suspect]
     Active Substance: RANITIDINE
     Indication: HERNIA

REACTIONS (1)
  - Colorectal cancer [Unknown]
